FAERS Safety Report 4664944-8 (Version None)
Quarter: 2005Q2

REPORT INFORMATION
  Report Type: 
  Country: None (occurrence: None)
  Receive Date: 20050517
  Receipt Date: 20050428
  Transmission Date: 20051028
  Serious: Yes (Life-Threatening, Other)
  Sender: FDA-Public Use
  Company Number: GBS050417184

PATIENT
  Age: 76 Year
  Sex: Female
  Weight: 60 kg

DRUGS (6)
  1. HUMALOG [Suspect]
     Indication: DIABETES MELLITUS
     Dosage: 8 IU/DAY
     Dates: start: 20040901
  2. CO-PROXAMOL [Concomitant]
  3. ENBREL [Concomitant]
  4. DICLOFENAC SODIUM [Concomitant]
  5. BENDROFLUAZIDE [Concomitant]
  6. GTN [Concomitant]

REACTIONS (1)
  - INJECTION SITE RASH [None]
